FAERS Safety Report 14388067 (Version 1)
Quarter: 2018Q1

REPORT INFORMATION
  Report Type: Spontaneous
  Country: US (occurrence: US)
  Receive Date: 20180115
  Receipt Date: 20180115
  Transmission Date: 20180509
  Serious: Yes (Other)
  Sender: FDA-Public Use
  Company Number: US-SA-2017SA208229

PATIENT
  Age: 44 Year
  Sex: Female
  Weight: 71.66 kg

DRUGS (4)
  1. HERCEPTIN [Concomitant]
     Active Substance: TRASTUZUMAB
  2. TAXOTERE [Suspect]
     Active Substance: DOCETAXEL
     Dosage: 125MG TO 130MG
     Route: 051
     Dates: start: 20100430, end: 20100430
  3. TAXOTERE [Suspect]
     Active Substance: DOCETAXEL
     Dosage: 125MG TO 130MG
     Route: 051
     Dates: start: 20100118, end: 20100118
  4. PARAPLATIN [Concomitant]
     Active Substance: CARBOPLATIN

REACTIONS (1)
  - Alopecia [Not Recovered/Not Resolved]

NARRATIVE: CASE EVENT DATE: 20101030
